FAERS Safety Report 21875453 (Version 1)
Quarter: 2023Q1

REPORT INFORMATION
  Report Type: Spontaneous
  Country: AT (occurrence: AT)
  Receive Date: 20230118
  Receipt Date: 20230118
  Transmission Date: 20230417
  Serious: Yes (Other)
  Sender: FDA-Public Use
  Company Number: AT-BAXTER-2022BAX025959

PATIENT
  Age: 70 Year
  Sex: Male

DRUGS (23)
  1. DEXAMETHASONE [Suspect]
     Active Substance: DEXAMETHASONE
     Indication: Bone lesion
     Dosage: 1ST LINE VCD, DURATION : 2 MONTHS
     Dates: start: 201505, end: 201507
  2. DEXAMETHASONE [Suspect]
     Active Substance: DEXAMETHASONE
     Indication: Plasma cell myeloma
     Dosage: UNK, DURATION : 1 YEAR
     Dates: start: 202108, end: 202209
  3. DEXAMETHASONE [Suspect]
     Active Substance: DEXAMETHASONE
     Dosage: 2ND LINE, DURATION : 1 YEAR
     Dates: start: 201706, end: 201901
  4. DEXAMETHASONE [Suspect]
     Active Substance: DEXAMETHASONE
     Dosage: 3RD LINE, DURATION : 2 YEARS
     Dates: start: 201901, end: 202107
  5. DEXAMETHASONE [Suspect]
     Active Substance: DEXAMETHASONE
     Dosage: 4 TH LINE, DURATION : 1 MONTH
     Dates: start: 202107, end: 202108
  6. BELANTAMAB MAFODOTIN [Suspect]
     Active Substance: BELANTAMAB MAFODOTIN
     Indication: Bone lesion
     Dosage: UNK, DURATION : 2 MONTHS
     Dates: start: 202209, end: 202211
  7. BELANTAMAB MAFODOTIN [Suspect]
     Active Substance: BELANTAMAB MAFODOTIN
     Indication: Plasma cell myeloma
  8. ELOTUZUMAB [Suspect]
     Active Substance: ELOTUZUMAB
     Indication: Plasma cell myeloma
     Dosage: UNK, DURATION : 1 YEAR
     Dates: start: 202108, end: 202209
  9. ELOTUZUMAB [Suspect]
     Active Substance: ELOTUZUMAB
     Indication: Bone lesion
  10. REVLIMID [Suspect]
     Active Substance: LENALIDOMIDE
     Indication: Bone lesion
     Dosage: 3RD LINE, DURATION : 2 YEAR
     Dates: start: 201901, end: 202107
  11. REVLIMID [Suspect]
     Active Substance: LENALIDOMIDE
     Indication: Plasma cell myeloma
     Dosage: 2 ND LINE, DURATION : 1 YEAR
     Dates: start: 201706, end: 201901
  12. IXAZOMIB [Suspect]
     Active Substance: IXAZOMIB
     Indication: Bone lesion
     Dosage: 4 TH LINE, DURATION : 1 MONTHS
     Dates: start: 202107, end: 202108
  13. IXAZOMIB [Suspect]
     Active Substance: IXAZOMIB
     Indication: Plasma cell myeloma
  14. DARATUMUMAB [Suspect]
     Active Substance: DARATUMUMAB
     Indication: Bone lesion
     Dosage: 3 RD LINE, DURATION : 2 YEARS
     Dates: start: 201901, end: 202107
  15. DARATUMUMAB [Suspect]
     Active Substance: DARATUMUMAB
     Indication: Plasma cell myeloma
  16. POMALIDOMIDE [Suspect]
     Active Substance: POMALIDOMIDE
     Indication: Bone lesion
     Dosage: UNK, DURATION : 1 YEAR
     Dates: start: 202108, end: 202209
  17. POMALIDOMIDE [Suspect]
     Active Substance: POMALIDOMIDE
     Indication: Plasma cell myeloma
  18. CYCLOPHOSPHAMIDE [Suspect]
     Active Substance: CYCLOPHOSPHAMIDE
     Indication: Bone lesion
     Dosage: UNK, THERAPY END DATE : ASKU
     Dates: start: 201508
  19. CYCLOPHOSPHAMIDE [Suspect]
     Active Substance: CYCLOPHOSPHAMIDE
     Indication: Haematopoietic stem cell mobilisation
     Dosage: 4 TH LINE, DURATION : 1 MONTH
     Dates: start: 202107, end: 202108
  20. CYCLOPHOSPHAMIDE [Suspect]
     Active Substance: CYCLOPHOSPHAMIDE
     Indication: Plasma cell myeloma
     Dosage: 1ST LINE VCD, DURATION : 2 MONTHS
     Dates: start: 201505, end: 201507
  21. VELCADE [Suspect]
     Active Substance: BORTEZOMIB
     Indication: Plasma cell myeloma
     Dosage: 1ST LINE VCD, DURATION : 2 MONTHS
     Dates: start: 201505, end: 201507
  22. VELCADE [Suspect]
     Active Substance: BORTEZOMIB
     Indication: Bone lesion
  23. MELPHALAN [Suspect]
     Active Substance: MELPHALAN
     Indication: Chemotherapy
     Dosage: UNK, THERAPY END DATE : ASKU
     Dates: start: 201509

REACTIONS (5)
  - Neoplasm progression [Unknown]
  - Therapy partial responder [Unknown]
  - Toxicity to various agents [Unknown]
  - Keratopathy [Unknown]
  - Therapy partial responder [Unknown]

NARRATIVE: CASE EVENT DATE: 20170601
